FAERS Safety Report 6317045-7 (Version None)
Quarter: 2009Q3

REPORT INFORMATION
  Report Type: 
  Country: None (occurrence: None)
  Receive Date: 20090820
  Receipt Date: 20090817
  Transmission Date: 20100115
  Serious: No
  Sender: FDA-Public Use
  Company Number: US-B.I. PHARMACEUTICALS,INC./RIDGEFIELD-2009-BP-09716BP

PATIENT
  Sex: Female

DRUGS (3)
  1. ZANTAC 150 [Suspect]
     Indication: BARRETT'S OESOPHAGUS
     Route: 048
     Dates: start: 20090815, end: 20090817
  2. TYLENOL (CAPLET) [Concomitant]
     Indication: MIGRAINE
     Dates: start: 20020101
  3. TYLENOL (CAPLET) [Concomitant]
     Indication: NERVE INJURY

REACTIONS (2)
  - PAIN OF SKIN [None]
  - SKIN DISORDER [None]
